FAERS Safety Report 6046680-9 (Version None)
Quarter: 2009Q1

REPORT INFORMATION
  Report Type: 
  Country: None (occurrence: None)
  Receive Date: 20090122
  Receipt Date: 20090116
  Transmission Date: 20090719
  Serious: Yes (Life-Threatening, Hospitalization)
  Sender: FDA-Public Use
  Company Number: DE-BAYER-200911392GPV

PATIENT
  Age: 62 Year
  Sex: Male
  Weight: 54 kg

DRUGS (1)
  1. NEXAVAR [Suspect]
     Indication: HEPATIC NEOPLASM MALIGNANT
     Dosage: AS USED: 400 MG  UNIT DOSE: 200 MG
     Route: 048
     Dates: end: 20081209

REACTIONS (1)
  - LIVER FUNCTION TEST ABNORMAL [None]
